FAERS Safety Report 4955053-9 (Version None)
Quarter: 2006Q1

REPORT INFORMATION
  Report Type: 
  Country: None (occurrence: None)
  Receive Date: 20060322
  Receipt Date: 20060314
  Transmission Date: 20060701
  Serious: Yes (Other)
  Sender: FDA-Public Use
  Company Number: USA0509108376

PATIENT
  Age: 55 Year
  Sex: Female
  Weight: 100 kg

DRUGS (9)
  1. CYMBALTA [Suspect]
     Indication: SCHIZOAFFECTIVE DISORDER
     Dosage: 60 MG, ORAL
     Route: 048
     Dates: start: 20050628, end: 20050823
  2. CLOZARIL [Concomitant]
  3. PAXIL [Concomitant]
  4. SYNTHROID [Concomitant]
  5. RESTORIL [Concomitant]
  6. ATIVAN [Concomitant]
  7. SEROQUEL [Concomitant]
  8. TOPAMAX [Concomitant]
  9. MOTRIN [Concomitant]

REACTIONS (14)
  - ABDOMINAL PAIN [None]
  - ALANINE AMINOTRANSFERASE INCREASED [None]
  - ASPARTATE AMINOTRANSFERASE INCREASED [None]
  - CONDITION AGGRAVATED [None]
  - EOSINOPHIL COUNT INCREASED [None]
  - GAMMA-GLUTAMYLTRANSFERASE INCREASED [None]
  - HEPATIC STEATOSIS [None]
  - HYPERSENSITIVITY [None]
  - INFLUENZA LIKE ILLNESS [None]
  - LIVER FUNCTION TEST ABNORMAL [None]
  - LIVER SCAN ABNORMAL [None]
  - MENTAL DISORDER [None]
  - NEUTROPHIL COUNT INCREASED [None]
  - WHITE BLOOD CELL COUNT DECREASED [None]
